FAERS Safety Report 9032306 (Version 1)
Quarter: 2013Q1

REPORT INFORMATION
  Report Type: Spontaneous
  Country: GB (occurrence: GB)
  Receive Date: 20130122
  Receipt Date: 20130122
  Transmission Date: 20140127
  Serious: Yes (Death, Other)
  Sender: FDA-Public Use
  Company Number: GB-ELI_LILLY_AND_COMPANY-GB201301003645

PATIENT
  Age: 48 Year
  Sex: Male

DRUGS (5)
  1. FLUOXETINE [Suspect]
     Indication: DEPRESSION
     Dosage: 60 MG, QD
     Route: 048
  2. ZAPONEX [Concomitant]
     Dosage: 400 MG, QD
     Route: 048
     Dates: start: 20081124
  3. PREGABALIN [Concomitant]
     Indication: ANXIETY
     Dosage: 100 MG, BID
     Route: 048
     Dates: start: 201007
  4. SULPIRIDE [Concomitant]
     Indication: PSYCHOTIC DISORDER
     Dosage: 600 MG, QD
     Route: 048
     Dates: start: 2005
  5. VENTOLIN HFA [Concomitant]
     Indication: ASTHMA
     Dosage: 2 DF, PRN
     Route: 055
     Dates: start: 200911

REACTIONS (3)
  - Myocardial infarction [Fatal]
  - Cardiac failure acute [Fatal]
  - Ventricular hypertrophy [Fatal]
